FAERS Safety Report 9208241 (Version 2)
Quarter: 2013Q4

REPORT INFORMATION
  Report Type: Spontaneous
  Country: GB (occurrence: GB)
  Receive Date: 20130403
  Receipt Date: 20131015
  Transmission Date: 20140711
  Serious: Yes (Other)
  Sender: FDA-Public Use
  Company Number: GB-WATSON-2013-05437

PATIENT
  Age: 75 Year
  Sex: Female
  Weight: 68 kg

DRUGS (2)
  1. DOXAZOSIN MESYLATE (UNKNOWN) [Suspect]
     Indication: HYPERTENSION
     Dosage: 1 DF, DAILY  CAN^T REMEMBER STRENGTH
     Route: 065
     Dates: start: 20081127, end: 20110221
  2. GABAPENTIN [Concomitant]
     Indication: PRODUCT USED FOR UNKNOWN INDICATION
     Route: 065
     Dates: start: 20081205, end: 20121015

REACTIONS (2)
  - Bladder disorder [Recovered/Resolved]
  - Urinary incontinence [Recovered/Resolved]
